FAERS Safety Report 15299585 (Version 10)
Quarter: 2019Q2

REPORT INFORMATION
  Report Type: Spontaneous
  Country: CA (occurrence: CA)
  Receive Date: 20180821
  Receipt Date: 20190621
  Transmission Date: 20190711
  Serious: Yes (Other)
  Sender: FDA-Public Use
  Company Number: CA-CELLTRION INC.-2018CA018460

PATIENT

DRUGS (11)
  1. INFLECTRA [Suspect]
     Active Substance: INFLIXIMAB-DYYB
     Dosage: 400 MG, 0,2,6 WEEKS THEN EVERY 8 WEEKS
     Route: 042
     Dates: start: 20180620
  2. INFLECTRA [Suspect]
     Active Substance: INFLIXIMAB-DYYB
     Dosage: 400 MG, 0,2,6 WEEKS THEN EVERY 8 WEEKS
     Route: 042
     Dates: start: 20181218
  3. INFLECTRA [Suspect]
     Active Substance: INFLIXIMAB-DYYB
     Dosage: 400 MG 0,2,6 WEEKS THEN EVERY 8 WEEKS
     Route: 042
     Dates: start: 20190409
  4. INFLECTRA [Suspect]
     Active Substance: INFLIXIMAB-DYYB
     Dosage: 400 MG, 0,2,6 WEEKS THEN EVERY 8 WEEKS
     Route: 042
     Dates: start: 20180129
  5. INFLECTRA [Suspect]
     Active Substance: INFLIXIMAB-DYYB
     Dosage: 400 MG 0,2,6 WEEKS THEN EVERY 8 WEEKS
     Route: 042
     Dates: start: 20180827
  6. INFLECTRA [Suspect]
     Active Substance: INFLIXIMAB-DYYB
     Dosage: 400 MG, 0,2,6 WEEKS THEN EVERY 8 WEEKS
     Route: 042
     Dates: start: 20190607
  7. INFLECTRA [Suspect]
     Active Substance: INFLIXIMAB-DYYB
     Dosage: 400 MG, 0,2,6 WEEKS THEN EVERY 8 WEEKS
     Route: 042
     Dates: start: 20181023
  8. INFLECTRA [Suspect]
     Active Substance: INFLIXIMAB-DYYB
     Dosage: 400 MG, 0,2,6 WEEKS THEN EVERY 8 WEEKS
     Route: 042
     Dates: start: 20190212
  9. INFLECTRA [Suspect]
     Active Substance: INFLIXIMAB-DYYB
     Indication: CROHN^S DISEASE
     Dosage: 400 MG, 0,2,6 WEEKS THEN EVERY 8 WEEKS
     Route: 042
     Dates: start: 20180115
  10. ESCITALOPRAM [Concomitant]
     Active Substance: ESCITALOPRAM OXALATE
     Dosage: 10 MG, 1X/DAY
     Route: 048
  11. INFLECTRA [Suspect]
     Active Substance: INFLIXIMAB-DYYB
     Dosage: 400 MG, 0,2,6 WEEKS THEN EVERY 8 WEEKS
     Route: 042
     Dates: start: 20180425

REACTIONS (3)
  - Stress fracture [Unknown]
  - Nasopharyngitis [Unknown]
  - Blood pressure fluctuation [Unknown]

NARRATIVE: CASE EVENT DATE: 20190607
